FAERS Safety Report 20069741 (Version 1)
Quarter: 2021Q4

REPORT INFORMATION
  Report Type: Spontaneous
  Country: US (occurrence: US)
  Receive Date: 20211115
  Receipt Date: 20211115
  Transmission Date: 20220304
  Serious: No
  Sender: FDA-Public Use
  Company Number: US-PFIZER INC-2021523934

PATIENT
  Age: 84 Year
  Sex: Female

DRUGS (1)
  1. IBRANCE [Suspect]
     Active Substance: PALBOCICLIB
     Dosage: 100 MG, CYCLIC (ON FOR 21 DAYS AND OFF FOR 7 DAYS)
     Route: 048
     Dates: start: 201912

REACTIONS (4)
  - Illness [Unknown]
  - Neoplasm recurrence [Unknown]
  - Pain [Unknown]
  - Abdominal pain upper [Unknown]
